FAERS Safety Report 16864864 (Version 1)
Quarter: 2019Q3

REPORT INFORMATION
  Report Type: Report from Study
  Country: DE (occurrence: DE)
  Receive Date: 20190929
  Receipt Date: 20190929
  Transmission Date: 20191005
  Serious: Yes (Other)
  Sender: FDA-Public Use
  Company Number: PHHY2019DE225338

PATIENT
  Sex: Female
  Weight: 63 kg

DRUGS (24)
  1. PANTOPRAZOLE [Concomitant]
     Active Substance: PANTOPRAZOLE
     Dosage: 40 MG, QD (MORNING)
     Route: 048
     Dates: start: 20181215, end: 20190110
  2. ETORICOXIB. [Concomitant]
     Active Substance: ETORICOXIB
     Indication: ANKYLOSING SPONDYLITIS
     Dosage: 60 MG, QD (MORNING)
     Route: 048
     Dates: start: 20180801, end: 20180828
  3. COSENTYX [Suspect]
     Active Substance: SECUKINUMAB
     Dosage: 150 MG, PER APPLICATION (PRE FILLED PEN)
     Route: 065
     Dates: start: 20190507
  4. VIGANTOLETTEN [Concomitant]
     Active Substance: CHOLECALCIFEROL
     Indication: PROPHYLAXIS
     Dosage: 1000 IU, ONCE IN MORNING
     Route: 048
     Dates: start: 201402
  5. COSENTYX [Suspect]
     Active Substance: SECUKINUMAB
     Dosage: 150 MG, PER APPLICATION (PRE FILLED PEN)
     Route: 065
     Dates: start: 20190924
  6. COSENTYX [Suspect]
     Active Substance: SECUKINUMAB
     Dosage: 150 MG, PER APPLICATION (PRE FILLED PEN)
     Route: 065
     Dates: start: 20190115
  7. COSENTYX [Suspect]
     Active Substance: SECUKINUMAB
     Dosage: 150 MG, PER APPLICATION (PRE FILLED PEN)
     Route: 065
     Dates: start: 20180828
  8. COSENTYX [Suspect]
     Active Substance: SECUKINUMAB
     Dosage: 150 MG, PER APPLICATION (PRE FILLED PEN)
     Route: 065
     Dates: start: 20190604
  9. PREDNISOLONE. [Concomitant]
     Active Substance: PREDNISOLONE
     Dosage: 15 MG, QD (MORNING)
     Route: 048
     Dates: start: 20180815
  10. COSENTYX [Suspect]
     Active Substance: SECUKINUMAB
     Dosage: 150 MG, PER APPLICATION (PRE FILLED PEN)
     Route: 065
     Dates: start: 20180904
  11. COSENTYX [Suspect]
     Active Substance: SECUKINUMAB
     Dosage: 150 MG, PER APPLICATION (PRE FILLED PEN)
     Route: 065
     Dates: start: 20190911
  12. COSENTYX [Suspect]
     Active Substance: SECUKINUMAB
     Dosage: 150 MG, PER APPLICATION (PRE FILLED PEN)
     Route: 065
     Dates: start: 20181023
  13. COSENTYX [Suspect]
     Active Substance: SECUKINUMAB
     Dosage: 150 MG, PER APPLICATION (PRE FILLED PEN)
     Route: 065
     Dates: start: 20190212
  14. IRBESARTAN. [Concomitant]
     Active Substance: IRBESARTAN
     Indication: HYPERTENSION
     Dosage: 0.5 DF, QD (IN MORNING)
     Route: 048
     Dates: start: 200804
  15. PANTOPRAZOLE [Concomitant]
     Active Substance: PANTOPRAZOLE
     Dosage: 40 MG, QD (MORNING)
     Route: 048
     Dates: start: 201907
  16. COSENTYX [Suspect]
     Active Substance: SECUKINUMAB
     Indication: ANKYLOSING SPONDYLITIS
     Dosage: 150 MG, PER APPLICATION (PRE FILLED PEN)
     Route: 065
     Dates: start: 20180808
  17. COSENTYX [Suspect]
     Active Substance: SECUKINUMAB
     Dosage: 150 MG, PER APPLICATION (PRE FILLED PEN)
     Route: 065
     Dates: start: 20190918
  18. COSENTYX [Suspect]
     Active Substance: SECUKINUMAB
     Dosage: 150 MG, PER APPLICATION (PRE FILLED PEN)
     Route: 065
     Dates: start: 20181120
  19. COSENTYX [Suspect]
     Active Substance: SECUKINUMAB
     Dosage: 150 MG, PER APPLICATION (PRE FILLED PEN)
     Route: 065
     Dates: start: 20181218
  20. COSENTYX [Suspect]
     Active Substance: SECUKINUMAB
     Dosage: 150 MG, PER APPLICATION (PRE FILLED PEN)
     Route: 065
     Dates: start: 20190312
  21. COSENTYX [Suspect]
     Active Substance: SECUKINUMAB
     Dosage: 150 MG, PER APPLICATION (PRE FILLED PEN)
     Route: 065
     Dates: start: 20190409
  22. ETORICOXIB. [Concomitant]
     Active Substance: ETORICOXIB
     Dosage: 60 MG, PRN
     Route: 048
     Dates: start: 20180829
  23. PANTOPRAZOLE [Concomitant]
     Active Substance: PANTOPRAZOLE
     Indication: PROPHYLAXIS
     Dosage: 20 MG, QD (MORNING)
     Route: 048
     Dates: start: 201608, end: 201811
  24. PREDNISOLONE. [Concomitant]
     Active Substance: PREDNISOLONE
     Indication: ANKYLOSING SPONDYLITIS
     Dosage: 25 MG, QD (MORNING)
     Dates: start: 20180801, end: 20180814

REACTIONS (1)
  - Respiratory tract infection [Not Recovered/Not Resolved]

NARRATIVE: CASE EVENT DATE: 20190909
